FAERS Safety Report 8462794-8 (Version None)
Quarter: 2012Q2

REPORT INFORMATION
  Report Type: 
  Country: None (occurrence: None)
  Receive Date: 20120619
  Receipt Date: 20120619
  Transmission Date: 20120825
  Serious: Yes (Life-Threatening)
  Sender: FDA-Public Use
  Company Number: None

PATIENT
  Age: 60 Year
  Sex: Male
  Weight: 104.9 kg

DRUGS (1)
  1. PACLITAXEL [Suspect]
     Indication: LUNG NEOPLASM MALIGNANT
     Dosage: 300 MG ONCE IV
     Route: 042
     Dates: start: 20120105, end: 20120126

REACTIONS (3)
  - UNRESPONSIVE TO STIMULI [None]
  - RESPIRATORY DISTRESS [None]
  - INFUSION RELATED REACTION [None]
